FAERS Safety Report 5316370-6 (Version None)
Quarter: 2007Q2

REPORT INFORMATION
  Report Type: 
  Country: None (occurrence: None)
  Receive Date: 20070430
  Receipt Date: 20070417
  Transmission Date: 20071010
  Serious: No
  Sender: FDA-Public Use
  Company Number: 200611IM000644

PATIENT
  Age: 66 Year
  Sex: Male
  Weight: 83.9154 kg

DRUGS (15)
  1. INTERFERON GAMMA-1B [Suspect]
     Indication: IDIOPATHIC PULMONARY FIBROSIS
     Dosage: 200 UG, TIW, SUBCUTANEOUS
     Route: 058
     Dates: start: 20060217
  2. TRICOR [Concomitant]
  3. LIPITOR [Concomitant]
  4. METFORMIN HCL [Concomitant]
  5. ASPIRIN [Concomitant]
  6. VITAMIN CAP [Concomitant]
  7. ASCORBIC ACID [Concomitant]
  8. FISH OIL [Concomitant]
  9. CALCIUM WITH VITAMIN D [Concomitant]
  10. CIALIS [Concomitant]
  11. TYLENOL [Concomitant]
  12. NASONEX [Concomitant]
  13. TESSALON PEARLES [Concomitant]
  14. FLONASE [Concomitant]
  15. PRILOSEC [Concomitant]

REACTIONS (1)
  - PROSTATE CANCER STAGE II [None]
